FAERS Safety Report 7020775-5 (Version None)
Quarter: 2010Q3

REPORT INFORMATION
  Report Type: 
  Country: None (occurrence: None)
  Receive Date: 20100929
  Receipt Date: 20100922
  Transmission Date: 20110219
  Serious: Yes (Hospitalization)
  Sender: FDA-Public Use
  Company Number: DE-CEPHALON-2010005044

PATIENT
  Age: 71 Year
  Sex: Male
  Weight: 80 kg

DRUGS (2)
  1. TRISENOX [Suspect]
     Indication: ACUTE MYELOID LEUKAEMIA
     Route: 042
  2. ATRA [Concomitant]

REACTIONS (3)
  - ANGINA UNSTABLE [None]
  - ELECTROCARDIOGRAM CHANGE [None]
  - THROMBOCYTOPENIA [None]
